FAERS Safety Report 7162584-2 (Version None)
Quarter: 2010Q4

REPORT INFORMATION
  Report Type: 
  Country: None (occurrence: None)
  Receive Date: 20101201
  Receipt Date: 20101116
  Transmission Date: 20110411
  Serious: Yes (Other)
  Sender: FDA-Public Use
  Company Number: DSA_44376_2010

PATIENT
  Sex: Female

DRUGS (2)
  1. LORAZEPAM [Suspect]
     Indication: MUSCLE SPASMS
     Dosage: (DF)
     Dates: start: 20101015
  2. EMBEDA [Suspect]
     Indication: ARTHRALGIA
     Dosage: (20 MG BID ORAL)
     Route: 048
     Dates: start: 20101011

REACTIONS (1)
  - PULMONARY EMBOLISM [None]
